FAERS Safety Report 14578940 (Version 1)
Quarter: 2018Q1

REPORT INFORMATION
  Report Type: Spontaneous
  Country: IR (occurrence: IR)
  Receive Date: 20180227
  Receipt Date: 20180227
  Transmission Date: 20180509
  Serious: Yes (Death, Hospitalization, Other)
  Sender: FDA-Public Use
  Company Number: IR-MYLANLABS-2018M1012927

PATIENT
  Age: 4 Year
  Sex: Female

DRUGS (2)
  1. PREDNISOLONE. [Suspect]
     Active Substance: PREDNISOLONE
     Indication: WARM TYPE HAEMOLYTIC ANAEMIA
     Dosage: 2 MG/KG/DAY
     Route: 065
  2. CYCLOSPORINE. [Suspect]
     Active Substance: CYCLOSPORINE
     Indication: WARM TYPE HAEMOLYTIC ANAEMIA
     Dosage: 2 MG/KG/DAY
     Route: 065

REACTIONS (7)
  - Pulmonary embolism [Fatal]
  - Tricuspid valve incompetence [Fatal]
  - Pulmonary valve stenosis [Fatal]
  - Respiratory distress [Fatal]
  - Pulmonary haemorrhage [Fatal]
  - Symptom masked [Fatal]
  - Pulmonary valve incompetence [Fatal]
